FAERS Safety Report 7790281-9 (Version None)
Quarter: 2011Q3

REPORT INFORMATION
  Report Type: 
  Country: None (occurrence: None)
  Receive Date: 20110930
  Receipt Date: 20110927
  Transmission Date: 20111222
  Serious: Yes (Other)
  Sender: FDA-Public Use
  Company Number: US-PFIZER INC-2011230563

PATIENT
  Age: 2 Month
  Sex: Female
  Weight: 2 kg

DRUGS (3)
  1. ZITHROMAX [Suspect]
     Dosage: 5 MG/KG, 1X/DAY
     Dates: start: 20110901
  2. CAFFEINE [Concomitant]
     Dosage: UNK
  3. ZITHROMAX [Suspect]
     Indication: PNEUMONIA
     Dosage: 10 MG/KG, 1X/DAY
     Route: 048
     Dates: start: 20110904

REACTIONS (3)
  - CONVULSION [None]
  - DYSKINESIA [None]
  - THROMBOCYTOPENIA [None]
